FAERS Safety Report 17480129 (Version 1)
Quarter: 2020Q1

REPORT INFORMATION
  Report Type: Spontaneous
  Country: AT (occurrence: AT)
  Receive Date: 20200228
  Receipt Date: 20200228
  Transmission Date: 20200409
  Serious: Yes (Other)
  Sender: FDA-Public Use
  Company Number: AT-BIOGEN-2020BI00842884

PATIENT
  Age: 23 Year
  Sex: Female

DRUGS (4)
  1. FINGOLIMOD. [Suspect]
     Active Substance: FINGOLIMOD
     Indication: MULTIPLE SCLEROSIS
     Dosage: FALL OF 2015
     Route: 065
     Dates: start: 2015
  2. TYSABRI [Suspect]
     Active Substance: NATALIZUMAB
     Route: 065
  3. TYSABRI [Suspect]
     Active Substance: NATALIZUMAB
     Route: 065
     Dates: start: 2013, end: 2015
  4. TYSABRI [Suspect]
     Active Substance: NATALIZUMAB
     Indication: MULTIPLE SCLEROSIS
     Route: 065
     Dates: start: 2009, end: 2013

REACTIONS (13)
  - Status epilepticus [Unknown]
  - Multiple sclerosis [Unknown]
  - Cerebral atrophy [Unknown]
  - Cognitive disorder [Unknown]
  - Febrile infection [Unknown]
  - Epilepsy [Unknown]
  - Generalised tonic-clonic seizure [Unknown]
  - Mental disorder [Unknown]
  - Prescribed underdose [Recovered/Resolved]
  - Lymphopenia [Unknown]
  - General physical health deterioration [Unknown]
  - Multiple sclerosis relapse [Unknown]
  - Psychotic disorder [Unknown]

NARRATIVE: CASE EVENT DATE: 2013
